FAERS Safety Report 12421646 (Version 1)
Quarter: 2016Q2

REPORT INFORMATION
  Report Type: Report from Study
  Country: CA (occurrence: CA)
  Receive Date: 20160531
  Receipt Date: 20160531
  Transmission Date: 20160815
  Serious: Yes (Hospitalization)
  Sender: FDA-Public Use
  Company Number: CA-IPSEN BIOPHARMACEUTICALS, INC.-2015-6664

PATIENT
  Age: 73 Year
  Sex: Male

DRUGS (1)
  1. SOMATULINE AUTOGEL [Suspect]
     Active Substance: LANREOTIDE ACETATE
     Indication: ACROMEGALY
     Dosage: 120 MG
     Route: 058
     Dates: start: 20130529

REACTIONS (7)
  - Cardiac pacemaker insertion [Unknown]
  - Flatulence [Unknown]
  - Cardiac output decreased [Not Recovered/Not Resolved]
  - Abdominal pain [Unknown]
  - Cerebrovascular accident [Unknown]
  - Mitral valve replacement [Unknown]
  - Vascular graft [Unknown]

NARRATIVE: CASE EVENT DATE: 2015
